FAERS Safety Report 25127800 (Version 1)
Quarter: 2025Q1

REPORT INFORMATION
  Report Type: Spontaneous
  Country: KR (occurrence: KR)
  Receive Date: 20250327
  Receipt Date: 20250327
  Transmission Date: 20250409
  Serious: Yes (Hospitalization, Other)
  Sender: CELLTRION
  Company Number: KR-CELLTRION INC.-2025KR004885

PATIENT

DRUGS (81)
  1. TRUXIMA [Suspect]
     Active Substance: RITUXIMAB-ABBS
     Indication: Product used for unknown indication
     Route: 042
     Dates: start: 20241230, end: 20241230
  2. TRUXIMA [Suspect]
     Active Substance: RITUXIMAB-ABBS
     Route: 042
     Dates: start: 20250210, end: 20250210
  3. BENDAMUSTINE [Suspect]
     Active Substance: BENDAMUSTINE
     Indication: Product used for unknown indication
     Route: 042
     Dates: start: 20241230, end: 20241231
  4. BENDAMUSTINE [Suspect]
     Active Substance: BENDAMUSTINE
     Route: 042
     Dates: start: 20250210, end: 20250211
  5. LEVOFLOXACIN [Concomitant]
     Active Substance: LEVOFLOXACIN
     Indication: Infection prophylaxis
     Route: 048
     Dates: start: 20250212, end: 20250224
  6. DICHLOZID [Concomitant]
     Indication: Hypertension
     Route: 048
     Dates: start: 20250212, end: 20250224
  7. NEULASTA [Concomitant]
     Active Substance: PEGFILGRASTIM
     Indication: Prophylaxis
     Route: 058
     Dates: start: 20250212, end: 20250212
  8. NEULASTA [Concomitant]
     Active Substance: PEGFILGRASTIM
     Indication: Febrile neutropenia
  9. COMPLEX PHAZYME [Concomitant]
     Indication: Prophylaxis
     Route: 048
     Dates: start: 20250210, end: 20250212
  10. COMPLEX PHAZYME [Concomitant]
     Indication: Dyspepsia
     Route: 048
     Dates: start: 20250312
  11. TACENOL 8 HOURS ER [Concomitant]
     Indication: Chemotherapy side effect prophylaxis
     Route: 048
     Dates: start: 20241230, end: 20241230
  12. TACENOL 8 HOURS ER [Concomitant]
     Route: 048
     Dates: start: 20250210, end: 20250210
  13. HYDROCORTISONE SODIUM SUCCINATE [Concomitant]
     Active Substance: HYDROCORTISONE SODIUM SUCCINATE
     Indication: Chemotherapy side effect prophylaxis
     Route: 042
     Dates: start: 20241230, end: 20241230
  14. HYDROCORTISONE SODIUM SUCCINATE [Concomitant]
     Active Substance: HYDROCORTISONE SODIUM SUCCINATE
     Route: 042
     Dates: start: 20250210, end: 20250210
  15. ALOXI [Concomitant]
     Active Substance: PALONOSETRON HYDROCHLORIDE
     Indication: Chemotherapy side effect prophylaxis
     Route: 042
     Dates: start: 20241230, end: 20241230
  16. ALOXI [Concomitant]
     Active Substance: PALONOSETRON HYDROCHLORIDE
     Route: 042
     Dates: start: 20250210, end: 20250210
  17. DULACKHAN EASY [Concomitant]
     Indication: Prophylaxis
     Route: 048
     Dates: start: 20250207, end: 20250212
  18. DULACKHAN EASY [Concomitant]
     Indication: Constipation
  19. LEVOPLUS [LEVOFLOXACIN] [Concomitant]
     Indication: Prophylaxis
     Route: 048
     Dates: start: 20250207, end: 20250212
  20. LEVOPLUS [LEVOFLOXACIN] [Concomitant]
     Indication: Infection
  21. NEUPOGEN [Concomitant]
     Active Substance: FILGRASTIM
     Indication: White blood cell count decreased
     Route: 042
     Dates: start: 20250203, end: 20250203
  22. NEUPOGEN [Concomitant]
     Active Substance: FILGRASTIM
     Indication: Febrile neutropenia
     Route: 042
     Dates: start: 20250207, end: 20250209
  23. FUROSEMIDE [Concomitant]
     Active Substance: FUROSEMIDE
     Indication: Generalised oedema
     Route: 048
     Dates: start: 20250204, end: 20250212
  24. AZEPTIN [AZELASTINE HYDROCHLORIDE] [Concomitant]
     Indication: Rash maculo-papular
     Route: 048
     Dates: start: 20250203, end: 20250224
  25. DIFLUCAN [Concomitant]
     Active Substance: FLUCONAZOLE
     Indication: Prophylaxis
     Route: 048
     Dates: start: 20250203, end: 20250224
  26. DIFLUCAN [Concomitant]
     Active Substance: FLUCONAZOLE
     Indication: Fungal infection
     Route: 048
     Dates: start: 20250311
  27. PENIRAMIN [Concomitant]
     Indication: Rash maculo-papular
     Route: 048
     Dates: start: 20250203
  28. MEPERIDINE [Concomitant]
     Active Substance: MEPERIDINE
     Indication: Pain prophylaxis
     Route: 042
     Dates: start: 20250203, end: 20250203
  29. MEPERIDINE [Concomitant]
     Active Substance: MEPERIDINE
     Route: 042
     Dates: start: 20250226, end: 20250306
  30. DEXAMETHASONE [Concomitant]
     Active Substance: DEXAMETHASONE
     Indication: Prophylaxis
     Route: 042
     Dates: start: 20250203, end: 20250203
  31. DEXAMETHASONE [Concomitant]
     Active Substance: DEXAMETHASONE
     Indication: Transfusion
  32. LASIX [Concomitant]
     Active Substance: FUROSEMIDE
     Indication: Prophylaxis
     Route: 042
     Dates: start: 20241227, end: 20241227
  33. LASIX [Concomitant]
     Active Substance: FUROSEMIDE
     Indication: Oedema
     Route: 042
     Dates: start: 20250203, end: 20250204
  34. DERMOTASONE MLE [Concomitant]
     Indication: Rash maculo-papular
     Route: 061
     Dates: start: 20250203
  35. PIPERACILLIN SODIUM\TAZOBACTAM SODIUM [Concomitant]
     Active Substance: PIPERACILLIN SODIUM\TAZOBACTAM SODIUM
     Indication: Prophylaxis
     Route: 042
     Dates: start: 20241220, end: 20250102
  36. PIPERACILLIN SODIUM\TAZOBACTAM SODIUM [Concomitant]
     Active Substance: PIPERACILLIN SODIUM\TAZOBACTAM SODIUM
     Indication: Infection
     Route: 042
     Dates: start: 20250202, end: 20250207
  37. ENTECAVIR [Concomitant]
     Active Substance: ENTECAVIR
     Indication: Hepatitis B antibody positive
     Route: 048
     Dates: start: 20241230, end: 20250317
  38. SULFAMETHOXAZOLE\TRIMETHOPRIM [Concomitant]
     Active Substance: SULFAMETHOXAZOLE\TRIMETHOPRIM
     Indication: Prophylaxis
     Route: 048
     Dates: start: 20241230
  39. FASTURTEC [Concomitant]
     Active Substance: RASBURICASE
     Indication: Prophylaxis
     Route: 042
     Dates: start: 20241230, end: 20241230
  40. FASTURTEC [Concomitant]
     Active Substance: RASBURICASE
     Indication: Hyperuricaemia
  41. CYNACTEN [Concomitant]
     Indication: Hypothyroidism
     Route: 042
     Dates: start: 20241228, end: 20241228
  42. ALDACTONE [Concomitant]
     Active Substance: SPIRONOLACTONE
     Indication: Hypertension
     Route: 048
     Dates: start: 20241226, end: 20250212
  43. ANEPOL [Concomitant]
     Indication: Premedication
     Route: 042
     Dates: start: 20241226, end: 20241226
  44. ANEPOL [Concomitant]
     Indication: Bronchoscopy
  45. MIDAZOLAM [Concomitant]
     Active Substance: MIDAZOLAM
     Indication: Premedication
     Route: 042
     Dates: start: 20241226, end: 20241226
  46. MIDAZOLAM [Concomitant]
     Active Substance: MIDAZOLAM
     Indication: Bronchoscopy
  47. LASIX [Concomitant]
     Active Substance: FUROSEMIDE
     Indication: Prophylaxis
     Route: 042
     Dates: start: 20241226, end: 20241226
  48. LASIX [Concomitant]
     Active Substance: FUROSEMIDE
     Indication: Oedema
  49. LEVOFLOXACIN [Concomitant]
     Active Substance: LEVOFLOXACIN
     Indication: Pneumonia
     Route: 042
     Dates: start: 20241224, end: 20250102
  50. ANAPROX [NAPROXEN SODIUM] [Concomitant]
     Indication: Pneumonia
     Route: 048
     Dates: start: 20241222, end: 20241226
  51. MACPERAN [METOCLOPRAMIDE HYDROCHLORIDE] [Concomitant]
     Indication: Nausea
     Route: 042
     Dates: start: 20241221, end: 20241221
  52. ESOMEZOL [ESOMEPRAZOLE STRONTIUM] [Concomitant]
     Indication: Gastric ulcer
     Route: 048
     Dates: start: 20241220, end: 20250102
  53. ESOMEZOL [ESOMEPRAZOLE STRONTIUM] [Concomitant]
     Route: 048
     Dates: start: 20250306
  54. DIGOXIN [Concomitant]
     Active Substance: DIGOXIN
     Indication: Hypertension
     Route: 048
     Dates: start: 20241219, end: 20250212
  55. FUROSEMIDE [Concomitant]
     Active Substance: FUROSEMIDE
     Indication: Prophylaxis
     Route: 048
     Dates: start: 20241219, end: 20250102
  56. FUROSEMIDE [Concomitant]
     Active Substance: FUROSEMIDE
     Indication: Oedema
  57. MAGNESIUM HYDROXIDE [Concomitant]
     Active Substance: MAGNESIUM HYDROXIDE
     Indication: Prophylaxis
     Route: 048
     Dates: start: 20241219, end: 20241220
  58. MAGNESIUM HYDROXIDE [Concomitant]
     Active Substance: MAGNESIUM HYDROXIDE
     Indication: Constipation
  59. MOSAONE [Concomitant]
     Indication: Prophylaxis
     Route: 048
     Dates: start: 20241219, end: 20250212
  60. MOSAONE [Concomitant]
     Indication: Dyspepsia
  61. TACENOL 8 HOURS ER [Concomitant]
     Indication: Pneumonia
     Route: 048
     Dates: start: 20241219, end: 20241229
  62. PENIRAMIN [Concomitant]
     Indication: Premedication
     Route: 042
     Dates: start: 20241219, end: 20250318
  63. PENIRAMIN [Concomitant]
     Indication: Transfusion
  64. HINECHOL [Concomitant]
     Indication: Neurogenic bladder
     Route: 048
     Dates: start: 20241122, end: 20250212
  65. LORAZEPAM [Concomitant]
     Active Substance: LORAZEPAM
     Indication: Insomnia
     Route: 048
     Dates: start: 20241122, end: 20250212
  66. TAPOCIN [Concomitant]
     Indication: Prophylaxis
     Route: 042
     Dates: start: 20250317, end: 20250318
  67. TAPOCIN [Concomitant]
     Indication: Infection
  68. TRANEXAMIC ACID [Concomitant]
     Active Substance: TRANEXAMIC ACID
     Indication: Haemorrhage prophylaxis
  69. IV-GLOBULIN [Concomitant]
     Indication: Thrombocytopenia
     Route: 042
     Dates: start: 20250306, end: 20250309
  70. TRAZODONE HYDROCHLORIDE [Concomitant]
     Active Substance: TRAZODONE HYDROCHLORIDE
     Indication: Insomnia
     Route: 048
     Dates: start: 20250305, end: 20250318
  71. DICLOMED [DICLOFENAC] [Concomitant]
     Indication: Mouth ulceration
     Route: 002
     Dates: start: 20250301, end: 20250318
  72. ETIZOLAM [Concomitant]
     Active Substance: ETIZOLAM
     Indication: Insomnia
     Route: 048
     Dates: start: 20250301
  73. MIRTAPINE [Concomitant]
     Indication: Insomnia
     Route: 048
     Dates: start: 20250301
  74. ZOLPIDEM TARTRATE [Concomitant]
     Active Substance: ZOLPIDEM TARTRATE
     Indication: Insomnia
     Route: 048
     Dates: start: 20250301, end: 20250318
  75. RIVOTRIL [Concomitant]
     Active Substance: CLONAZEPAM
     Indication: Insomnia
     Route: 048
     Dates: start: 20250301
  76. TACENOL 8 HOURS ER [Concomitant]
     Indication: Premedication
     Route: 048
     Dates: start: 20250301, end: 20250318
  77. TACENOL 8 HOURS ER [Concomitant]
     Indication: Transfusion
  78. FENTADUR [Concomitant]
     Indication: Pain
     Route: 062
     Dates: start: 20250227
  79. TAZOPERAN [Concomitant]
     Indication: Prophylaxis
     Route: 042
     Dates: start: 20250223, end: 20250306
  80. TAZOPERAN [Concomitant]
     Indication: Infection
  81. DARBEPOETIN ALFA [Concomitant]
     Active Substance: DARBEPOETIN ALFA
     Indication: Anaemia
     Route: 058
     Dates: start: 20250219, end: 20250312

REACTIONS (3)
  - Febrile neutropenia [Recovered/Resolved]
  - Decreased appetite [Recovered/Resolved]
  - Thrombocytopenia [Unknown]

NARRATIVE: CASE EVENT DATE: 20250202
